FAERS Safety Report 21468094 (Version 1)
Quarter: 2022Q4

REPORT INFORMATION
  Report Type: Spontaneous
  Country: US (occurrence: US)
  Receive Date: 20221017
  Receipt Date: 20221017
  Transmission Date: 20230113
  Serious: No
  Sender: FDA-Public Use
  Company Number: US-ALLERGAN-2208022US

PATIENT
  Age: 76 Year
  Sex: Female

DRUGS (9)
  1. LINZESS [Suspect]
     Active Substance: LINACLOTIDE
     Indication: Constipation
     Dosage: UNK
  2. PULMICORT TURBUHALER [Concomitant]
     Active Substance: BUDESONIDE
     Indication: Bronchitis
  3. GLIMEPIRIDE [Concomitant]
     Active Substance: GLIMEPIRIDE
     Indication: Diabetes mellitus
  4. DILTIAZEM [Concomitant]
     Active Substance: DILTIAZEM
     Indication: Cardiac disorder
  5. ASPIRIN [Concomitant]
     Active Substance: ASPIRIN
  6. DULERA [Concomitant]
     Active Substance: FORMOTEROL FUMARATE DIHYDRATE\MOMETASONE FUROATE
     Indication: Bronchitis
  7. PREDNISONE [Concomitant]
     Active Substance: PREDNISONE
     Indication: Bronchitis
  8. Unknown nebulized medication [Concomitant]
     Indication: Bronchitis
  9. Unspecified Psych meds [Concomitant]

REACTIONS (2)
  - Dizziness [Unknown]
  - Nausea [Unknown]
